FAERS Safety Report 6424014-5 (Version None)
Quarter: 2009Q4

REPORT INFORMATION
  Report Type: 
  Country: None (occurrence: None)
  Receive Date: 20091102
  Receipt Date: 20091019
  Transmission Date: 20100525
  Serious: Yes (Hospitalization)
  Sender: FDA-Public Use
  Company Number: IL-MYLANLABS-2009S1018185

PATIENT
  Age: 19 Year
  Sex: Female

DRUGS (2)
  1. METOCLOPRAMIDE [Interacting]
     Indication: VOMITING
  2. FLUOXETINE [Suspect]
     Indication: ANXIETY

REACTIONS (2)
  - DRUG INTERACTION [None]
  - SEROTONIN SYNDROME [None]
